FAERS Safety Report 7132731-7 (Version None)
Quarter: 2010Q4

REPORT INFORMATION
  Report Type: 
  Country: None (occurrence: None)
  Receive Date: 20101129
  Receipt Date: 20101129
  Transmission Date: 20110411
  Serious: No
  Sender: FDA-Public Use
  Company Number: None

PATIENT
  Sex: Male
  Weight: 106.5953 kg

DRUGS (1)
  1. METAMUCIL-2 [Suspect]
     Indication: CARDIAC DISORDER
     Dosage: 1 HEAPING TABLESPOON ONCE PER DAY
     Dates: start: 19920101, end: 20100101

REACTIONS (2)
  - DRUG INEFFECTIVE [None]
  - PRODUCT QUALITY ISSUE [None]
